FAERS Safety Report 6254976-0 (Version None)
Quarter: 2009Q3

REPORT INFORMATION
  Report Type: 
  Country: None (occurrence: None)
  Receive Date: 20090702
  Receipt Date: 20090622
  Transmission Date: 20100115
  Serious: Yes (Other)
  Sender: FDA-Public Use
  Company Number: SE-MERCK-0906SWE00007

PATIENT
  Age: 88 Year
  Sex: Female

DRUGS (6)
  1. FOSAMAX [Suspect]
     Route: 048
     Dates: start: 20000101, end: 20070101
  2. ACETAMINOPHEN [Concomitant]
     Route: 065
  3. FUROSEMIDE [Concomitant]
     Route: 065
  4. METOPROLOL TARTRATE [Concomitant]
     Route: 065
  5. ASPIRIN [Concomitant]
     Route: 065
  6. CALCIUM CARBONATE [Concomitant]
     Route: 065

REACTIONS (1)
  - IMPAIRED HEALING [None]
